FAERS Safety Report 12301284 (Version 1)
Quarter: 2016Q2

REPORT INFORMATION
  Report Type: Spontaneous
  Country: US (occurrence: US)
  Receive Date: 20160425
  Receipt Date: 20160425
  Transmission Date: 20160815
  Serious: Yes (Other)
  Sender: FDA-Public Use
  Company Number: US-FRESENIUS KABI USA, LLC-2016BDR00020

PATIENT
  Age: 30 Year
  Sex: Female

DRUGS (2)
  1. MORPHINE SULFATE. [Suspect]
     Active Substance: MORPHINE SULFATE
     Indication: PAIN
     Dosage: 2 MG, EVERY 15 MINUTES
     Route: 042
  2. MORPHINE SULFATE. [Suspect]
     Active Substance: MORPHINE SULFATE
     Indication: SICKLE CELL ANAEMIA WITH CRISIS

REACTIONS (2)
  - Hypoxia [Recovered/Resolved]
  - Exposure during pregnancy [Recovered/Resolved]
